FAERS Safety Report 4576704-7 (Version None)
Quarter: 2005Q1

REPORT INFORMATION
  Report Type: 
  Country: None (occurrence: None)
  Receive Date: 20050207
  Receipt Date: 20041227
  Transmission Date: 20050727
  Serious: Yes (Hospitalization)
  Sender: FDA-Public Use
  Company Number: M-04-474

PATIENT
  Age: 72 Year
  Sex: Female
  Weight: 106.5953 kg

DRUGS (9)
  1. AMIODARONE HCL [Suspect]
     Indication: ARRHYTHMIA
     Dosage: 200 MG QD PO
     Route: 048
     Dates: end: 20041126
  2. PACERONE [Suspect]
     Indication: ARRHYTHMIA
     Dosage: 200 MG QD PO
     Route: 048
  3. TOPROL-XL [Concomitant]
  4. LOTREL [Concomitant]
  5. ASPIRIN [Concomitant]
  6. LEVOTHROID [Concomitant]
  7. ISOSORBIDE [Concomitant]
  8. LOVASTATIN [Concomitant]
  9. COUMADIN [Concomitant]

REACTIONS (5)
  - ARTHRALGIA [None]
  - COUGH [None]
  - DYSPNOEA [None]
  - MUSCLE SPASMS [None]
  - PNEUMONITIS [None]
